FAERS Safety Report 5313269-6 (Version None)
Quarter: 2007Q1

REPORT INFORMATION
  Report Type: 
  Country: None (occurrence: None)
  Receive Date: 20070130
  Receipt Date: 20060802
  Transmission Date: 20070707
  Serious: Yes (Hospitalization)
  Sender: FDA-Public Use
  Company Number: 146885USA

PATIENT
  Sex: Female

DRUGS (1)
  1. COPAXONE [Suspect]
     Indication: MULTIPLE SCLEROSIS
     Dosage: 20 MG (20 MG,ONCE A DAY), SUBCUTANEOUS
     Route: 058
     Dates: start: 20041104, end: 20050501

REACTIONS (6)
  - CELLULITIS [None]
  - CHEST PAIN [None]
  - FEELING COLD [None]
  - HYPERSENSITIVITY [None]
  - RASH [None]
  - TREMOR [None]
